FAERS Safety Report 5514885-9 (Version None)
Quarter: 2007Q4

REPORT INFORMATION
  Report Type: 
  Country: None (occurrence: None)
  Receive Date: 20071113
  Receipt Date: 20060920
  Transmission Date: 20080405
  Serious: No
  Sender: FDA-Public Use
  Company Number: A0620856A

PATIENT
  Sex: Male

DRUGS (11)
  1. COREG [Suspect]
     Dosage: 6.25MG VARIABLE DOSE
     Route: 048
  2. NITROGLYCERIN [Concomitant]
  3. ALTACE [Concomitant]
  4. ISOSORBIDE DINITRATE [Concomitant]
  5. ALLOPURINOL [Concomitant]
  6. GLIPIZIDE [Concomitant]
  7. SLOW MAG [Concomitant]
  8. TRICOR [Concomitant]
  9. MAGNESIUM SULFATE [Concomitant]
  10. LASIX [Concomitant]
  11. COUMADIN [Concomitant]

REACTIONS (2)
  - BLOOD GLUCOSE DECREASED [None]
  - PROSTATIC SPECIFIC ANTIGEN INCREASED [None]
